FAERS Safety Report 4557219-9 (Version None)
Quarter: 2005Q1

REPORT INFORMATION
  Report Type: 
  Country: None (occurrence: None)
  Receive Date: 20050118
  Receipt Date: 20050105
  Transmission Date: 20050727
  Serious: Yes (Other)
  Sender: FDA-Public Use
  Company Number: DEU-2004-0001150

PATIENT
  Age: 52 Year
  Sex: Male
  Weight: 93 kg

DRUGS (10)
  1. OXYCODONE HCL [Suspect]
     Indication: POST PROCEDURAL PAIN
     Dosage: SEE IMAGE
     Route: 048
     Dates: start: 20040922, end: 20040928
  2. OXYCODONE HCL [Suspect]
     Indication: POST PROCEDURAL PAIN
     Dosage: SEE IMAGE
     Route: 048
     Dates: start: 20040929, end: 20041025
  3. OXYCODONE HCL [Suspect]
     Indication: POST PROCEDURAL PAIN
     Dosage: SEE IMAGE
     Route: 048
     Dates: start: 20041026, end: 20041202
  4. MARCUMAR [Suspect]
     Indication: COAGULOPATHY
     Dosage: TABLET, ORAL
     Route: 048
  5. AMITRIPTYLINE HCL [Suspect]
     Indication: PAIN
     Dosage: 10 MG, BID, ORAL
     Route: 048
     Dates: start: 20040922
  6. GABAPENTIN [Suspect]
     Indication: PAIN
     Dosage: 1200 MG, DAILY, ORAL
     Route: 048
     Dates: start: 20040922
  7. ISOSORBIDE MONONITRATE [Concomitant]
  8. PANTOZOL (PANTOPRAZOLE SODIUM) [Concomitant]
  9. BELOC-ZOK FORTE (METOPROLOL SUCCINATE) [Concomitant]
  10. ATORVASTATIN CALCIUM [Concomitant]

REACTIONS (3)
  - DRUG INTERACTION [None]
  - INTERNATIONAL NORMALISED RATIO DECREASED [None]
  - PROTHROMBIN TIME SHORTENED [None]
